FAERS Safety Report 11367535 (Version 1)
Quarter: 2015Q3

REPORT INFORMATION
  Report Type: Spontaneous
  Country: US (occurrence: US)
  Receive Date: 20150811
  Receipt Date: 20150811
  Transmission Date: 20151125
  Serious: No
  Sender: FDA-Public Use
  Company Number: US-ELI_LILLY_AND_COMPANY-US201204009574

PATIENT
  Sex: Male
  Weight: 108.8 kg

DRUGS (3)
  1. PROTONIX [Concomitant]
     Active Substance: PANTOPRAZOLE SODIUM
  2. CIALIS [Concomitant]
     Active Substance: TADALAFIL
     Dosage: 5 MG, PRN
  3. AXIRON [Suspect]
     Active Substance: TESTOSTERONE
     Indication: BLOOD TESTOSTERONE DECREASED
     Dosage: 30 MG, QD
     Dates: start: 2011

REACTIONS (4)
  - Arthralgia [Unknown]
  - Acne [Unknown]
  - Fatigue [Unknown]
  - Asthenia [Unknown]
